FAERS Safety Report 19157964 (Version 1)
Quarter: 2021Q2

REPORT INFORMATION
  Report Type: Spontaneous
  Country: US (occurrence: US)
  Receive Date: 20210419
  Receipt Date: 20210419
  Transmission Date: 20210717
  Serious: Yes (Life-Threatening)
  Sender: FDA-Public Use
  Company Number: None

PATIENT
  Age: 65 Year
  Sex: Female
  Weight: 112.5 kg

DRUGS (1)
  1. ENALAPRIL (ENALAPRIL MALEATE) [Suspect]
     Active Substance: ENALAPRIL MALEATE
     Indication: HYPERTENSION
     Route: 048

REACTIONS (1)
  - Swollen tongue [None]

NARRATIVE: CASE EVENT DATE: 20210416
